FAERS Safety Report 8825823 (Version 2)
Quarter: 2015Q3

REPORT INFORMATION
  Report Type: Report from Study
  Country: US (occurrence: US)
  Receive Date: 20121004
  Receipt Date: 20150707
  Transmission Date: 20151125
  Serious: Yes (Death, Other)
  Sender: FDA-Public Use
  Company Number: US-ROCHE-1132068

PATIENT
  Sex: Female
  Weight: 51 kg

DRUGS (22)
  1. IMODIUM [Concomitant]
     Active Substance: LOPERAMIDE HYDROCHLORIDE
     Dosage: AS REQUIRED
     Route: 065
  2. CANCIDAS [Concomitant]
     Active Substance: CASPOFUNGIN ACETATE
     Route: 042
  3. VALCYTE [Concomitant]
     Active Substance: VALGANCICLOVIR HYDROCHLORIDE
     Route: 065
  4. RITUXAN [Suspect]
     Active Substance: RITUXIMAB
     Indication: PLASMA CELL MYELOMA
     Route: 042
     Dates: start: 20050901
  5. RESTORIL [Concomitant]
     Active Substance: TEMAZEPAM
     Route: 065
  6. POTASSIUM CHLORIDE. [Concomitant]
     Active Substance: POTASSIUM CHLORIDE
     Route: 065
  7. BENADRYL [Concomitant]
     Active Substance: DIPHENHYDRAMINE HYDROCHLORIDE
     Route: 042
  8. RITUXAN [Suspect]
     Active Substance: RITUXIMAB
     Indication: EPSTEIN-BARR VIRUS INFECTION
  9. DITROPAN XL [Concomitant]
     Active Substance: OXYBUTYNIN CHLORIDE
  10. PEPCID [Concomitant]
     Active Substance: FAMOTIDINE
     Route: 065
  11. DILAUDID [Concomitant]
     Active Substance: HYDROMORPHONE HYDROCHLORIDE
     Route: 065
  12. BACTRIM [Concomitant]
     Active Substance: SULFAMETHOXAZOLE\TRIMETHOPRIM
     Route: 065
  13. REGLAN [Concomitant]
     Active Substance: METOCLOPRAMIDE HYDROCHLORIDE
     Dosage: BEFORE EATING
     Route: 065
  14. FOSCARNET [Concomitant]
     Active Substance: FOSCARNET
     Route: 042
  15. CELLCEPT [Concomitant]
     Active Substance: MYCOPHENOLATE MOFETIL\MYCOPHENOLATE MOFETIL HYDROCHLORIDE
     Route: 065
  16. VORICONAZOLE. [Concomitant]
     Active Substance: VORICONAZOLE
     Route: 065
  17. FOSCARNET [Concomitant]
     Active Substance: FOSCARNET
     Route: 042
  18. ZENAPAX [Concomitant]
     Active Substance: DACLIZUMAB
     Route: 042
  19. PHENERGAN [Concomitant]
     Active Substance: PROMETHAZINE HYDROCHLORIDE
     Dosage: AS REQUIRED
     Route: 065
  20. LEVAQUIN [Concomitant]
     Active Substance: LEVOFLOXACIN
     Route: 065
  21. GANCICLOVIR. [Concomitant]
     Active Substance: GANCICLOVIR
     Route: 042
  22. PREVACID [Concomitant]
     Active Substance: LANSOPRAZOLE
     Route: 065

REACTIONS (41)
  - Sinus operation [Unknown]
  - Productive cough [Unknown]
  - Feeling of body temperature change [Unknown]
  - Dysuria [Unknown]
  - Biopsy site unspecified abnormal [Unknown]
  - Insomnia [Unknown]
  - Nausea [Unknown]
  - Retching [Unknown]
  - Joint injury [Unknown]
  - Pollakiuria [Unknown]
  - Fatigue [Unknown]
  - Dizziness postural [Unknown]
  - Erythema [Unknown]
  - Haematuria [Unknown]
  - Neoplasm [Unknown]
  - Face injury [Unknown]
  - Rash erythematous [Recovering/Resolving]
  - Off label use [Unknown]
  - Bladder spasm [Unknown]
  - Death [Fatal]
  - Tachycardia [Unknown]
  - Diarrhoea [Unknown]
  - Constipation [Unknown]
  - Confusional state [Unknown]
  - Oedema peripheral [Unknown]
  - Pruritus [Unknown]
  - Dermatitis [Unknown]
  - Headache [Not Recovered/Not Resolved]
  - Vomiting [Unknown]
  - Dyspnoea [Unknown]
  - Cough [Unknown]
  - Chest discomfort [Unknown]
  - Asthenia [Unknown]
  - Cold sweat [Unknown]
  - Haemolytic anaemia [Unknown]
  - Orthostatic hypotension [Unknown]
  - Pyrexia [Unknown]
  - Ill-defined disorder [Unknown]
  - Fall [Unknown]
  - Petechiae [Recovering/Resolving]
  - Decreased appetite [Unknown]
